FAERS Safety Report 17043080 (Version 1)
Quarter: 2019Q4

REPORT INFORMATION
  Report Type: Spontaneous
  Country: US (occurrence: US)
  Receive Date: 20191118
  Receipt Date: 20191118
  Transmission Date: 20200122
  Serious: No
  Sender: FDA-Public Use
  Company Number: US-AKRON, INC.-2076947

PATIENT
  Sex: Male

DRUGS (1)
  1. LIDOCAINE 2.5% AND PRILOCAINE 2.5% CREAM [Suspect]
     Active Substance: LIDOCAINE\PRILOCAINE
     Indication: HERPES VIRUS INFECTION
     Route: 061

REACTIONS (1)
  - Drug ineffective [Unknown]
